FAERS Safety Report 5515592-9 (Version None)
Quarter: 2007Q4

REPORT INFORMATION
  Report Type: 
  Country: None (occurrence: None)
  Receive Date: 20071113
  Receipt Date: 20070619
  Transmission Date: 20080405
  Serious: No
  Sender: FDA-Public Use
  Company Number: A0658255A

PATIENT
  Age: 61 Year
  Sex: Female

DRUGS (5)
  1. COREG [Suspect]
     Dosage: 12.5MG TWICE PER DAY
     Route: 048
  2. DIGOXIN [Concomitant]
  3. AVAPRO [Concomitant]
  4. FEMARA [Concomitant]
  5. CYMBALTA [Concomitant]

REACTIONS (2)
  - LETHARGY [None]
  - NAUSEA [None]
